FAERS Safety Report 8150359-7 (Version None)
Quarter: 2012Q1

REPORT INFORMATION
  Report Type: 
  Country: None (occurrence: None)
  Receive Date: 20120220
  Receipt Date: 20120216
  Transmission Date: 20120608
  Serious: Yes (Hospitalization, Other)
  Sender: FDA-Public Use
  Company Number: NZ-PFIZER INC-2012041338

PATIENT
  Sex: Male

DRUGS (6)
  1. ATENOLOL [Concomitant]
     Dosage: UNK
  2. VARENICLINE TARTRATE [Suspect]
     Dosage: UNK
  3. ASPIRIN [Concomitant]
  4. PRILOSEC [Concomitant]
     Dosage: UNK
  5. TEGRETOL [Concomitant]
     Dosage: UNK
  6. QUETIAPINE [Concomitant]
     Indication: SCHIZOAFFECTIVE DISORDER
     Dosage: UNK

REACTIONS (5)
  - AGGRESSION [None]
  - SUICIDAL BEHAVIOUR [None]
  - ELECTROCARDIOGRAM T WAVE ABNORMAL [None]
  - HOMICIDAL IDEATION [None]
  - DIZZINESS [None]
